FAERS Safety Report 16973488 (Version 1)
Quarter: 2019Q4

REPORT INFORMATION
  Report Type: Spontaneous
  Country: US (occurrence: US)
  Receive Date: 20190912
  Receipt Date: 20190912
  Transmission Date: 20200122
  Serious: No
  Sender: FDA-Public Use
  Company Number: None

PATIENT
  Age: 70 Year
  Sex: Male

DRUGS (1)
  1. ENBREL [Suspect]
     Active Substance: ETANERCEPT
     Route: 058
     Dates: start: 20190501, end: 20190825

REACTIONS (6)
  - Malaise [None]
  - Eye irritation [None]
  - Oropharyngeal pain [None]
  - Drug ineffective [None]
  - Headache [None]
  - Drug intolerance [None]

NARRATIVE: CASE EVENT DATE: 20190912
